FAERS Safety Report 21441412 (Version 2)
Quarter: 2023Q1

REPORT INFORMATION
  Report Type: Spontaneous
  Country: US (occurrence: US)
  Receive Date: 20221011
  Receipt Date: 20230313
  Transmission Date: 20230417
  Serious: Yes (Hospitalization, Other)
  Sender: FDA-Public Use
  Company Number: US-PFIZER INC-PV202200062765

PATIENT
  Age: 15 Year
  Sex: Female

DRUGS (11)
  1. VENLAFAXINE HCL [Suspect]
     Active Substance: VENLAFAXINE HYDROCHLORIDE
     Indication: Major depression
     Dosage: 75 MG, DAILY
     Route: 065
     Dates: start: 202102, end: 202108
  2. VENLAFAXINE HCL [Suspect]
     Active Substance: VENLAFAXINE HYDROCHLORIDE
     Indication: Post-traumatic stress disorder
     Dosage: 112.5 MG, DAILY
     Route: 065
     Dates: start: 202108, end: 202111
  3. VENLAFAXINE HCL [Suspect]
     Active Substance: VENLAFAXINE HYDROCHLORIDE
     Dosage: 75 MG, DAILY
     Route: 065
     Dates: start: 202111
  4. SERTRALINE [Suspect]
     Active Substance: SERTRALINE HYDROCHLORIDE
     Indication: Major depression
     Dosage: 100 MG, DAILY
     Route: 065
  5. SERTRALINE [Suspect]
     Active Substance: SERTRALINE HYDROCHLORIDE
     Indication: Post-traumatic stress disorder
     Dosage: 75 MG, DAILY
     Route: 065
  6. SERTRALINE [Suspect]
     Active Substance: SERTRALINE HYDROCHLORIDE
     Dosage: 100 MG, DAILY, RE-TRIALED
     Route: 065
  7. CITALOPRAM [Concomitant]
     Active Substance: CITALOPRAM HYDROBROMIDE
     Indication: Post-traumatic stress disorder
     Dosage: 40 MG, DAILY
     Route: 065
  8. CITALOPRAM [Concomitant]
     Active Substance: CITALOPRAM HYDROBROMIDE
     Indication: Depression
  9. CITALOPRAM [Concomitant]
     Active Substance: CITALOPRAM HYDROBROMIDE
     Indication: Major depression
  10. AMPHETAMINE [Concomitant]
     Active Substance: AMPHETAMINE
     Indication: Neurodevelopmental disorder
     Dosage: 5 MG, DAILY EXTENDED-RELEASE (ER)
     Route: 065
  11. AMPHETAMINE [Concomitant]
     Active Substance: AMPHETAMINE
     Dosage: TITRATED UP TO 15 MG, DAILY
     Route: 065

REACTIONS (5)
  - Galactorrhoea [Recovered/Resolved]
  - Hyperprolactinaemia [Unknown]
  - Depressed mood [Unknown]
  - Apathy [Unknown]
  - Off label use [Unknown]
